FAERS Safety Report 5304962-X (Version None)
Quarter: 2007Q2

REPORT INFORMATION
  Report Type: 
  Country: None (occurrence: None)
  Receive Date: 20070423
  Receipt Date: 20070409
  Transmission Date: 20071010
  Serious: Yes (Other)
  Sender: FDA-Public Use
  Company Number: US-PFIZER INC-2007028418

PATIENT

DRUGS (1)
  1. BEXTRA [Suspect]
     Dates: start: 20020101, end: 20050324

REACTIONS (1)
  - CEREBROVASCULAR ACCIDENT [None]
